FAERS Safety Report 4398960-0 (Version None)
Quarter: 2004Q3

REPORT INFORMATION
  Report Type: 
  Country: None (occurrence: None)
  Receive Date: 20040712
  Receipt Date: 20040630
  Transmission Date: 20050211
  Serious: No
  Sender: FDA-Public Use
  Company Number: 04H-163-0265527-00

PATIENT
  Sex: Female

DRUGS (1)
  1. MAGNESIUM SULFATE [Suspect]
     Indication: PREMATURE LABOUR
     Dosage: 18 GM, 1 IN 1 HR, INTRAVENOUS
     Route: 042

REACTIONS (5)
  - ACCIDENTAL OVERDOSE [None]
  - DEPRESSED LEVEL OF CONSCIOUSNESS [None]
  - DRUG EXPOSURE DURING PREGNANCY [None]
  - MEDICATION ERROR [None]
  - RESPIRATORY RATE DECREASED [None]
